FAERS Safety Report 20453403 (Version 2)
Quarter: 2022Q2

REPORT INFORMATION
  Report Type: Spontaneous
  Country: US (occurrence: US)
  Receive Date: 20220210
  Receipt Date: 20220517
  Transmission Date: 20220720
  Serious: Yes (Hospitalization)
  Sender: FDA-Public Use
  Company Number: US-BRISTOL-MYERS SQUIBB COMPANY-BMS-2022-014922

PATIENT
  Age: 70 Year
  Sex: Male

DRUGS (3)
  1. SPRYCEL [Suspect]
     Active Substance: DASATINIB
     Indication: White blood cell count increased
     Dosage: 100 MILLIGRAM, QD
     Route: 048
     Dates: start: 202201
  2. SPRYCEL [Suspect]
     Active Substance: DASATINIB
     Indication: Acute myeloid leukaemia
     Route: 048
     Dates: start: 202112
  3. SPRYCEL [Suspect]
     Active Substance: DASATINIB

REACTIONS (3)
  - Fluid retention [Unknown]
  - Hospitalisation [Unknown]
  - Anaemia [Unknown]
